FAERS Safety Report 14430514 (Version 1)
Quarter: 2018Q1

REPORT INFORMATION
  Report Type: Spontaneous
  Country: US (occurrence: US)
  Receive Date: 20180123
  Receipt Date: 20180123
  Transmission Date: 20180509
  Serious: Yes (Other)
  Sender: FDA-Public Use
  Company Number: None

PATIENT
  Age: 63 Year
  Sex: Female
  Weight: 68 kg

DRUGS (18)
  1. ENOXAPARIN [Concomitant]
     Active Substance: ENOXAPARIN
  2. FAMOTIDINE. [Concomitant]
     Active Substance: FAMOTIDINE
  3. METHYLPREDNISOLONE. [Concomitant]
     Active Substance: METHYLPREDNISOLONE
  4. PULMICORT TURBUHALER [Concomitant]
     Active Substance: BUDESONIDE
  5. CEFTAROLINE [Suspect]
     Active Substance: CEFTAROLINE
     Indication: STAPHYLOCOCCAL INFECTION
     Route: 042
     Dates: start: 20171229, end: 20180121
  6. GUAIFENESIN DM [Concomitant]
     Active Substance: DEXTROMETHORPHAN\DEXTROMETHORPHAN HYDROBROMIDE\GUAIFENESIN
  7. LACTOBACILLUS [Concomitant]
     Active Substance: LACTOBACILLUS ACIDOPHILUS
  8. MULTIVITAMIN/MINERAL [Concomitant]
  9. METOPROLOL SUCCINATE. [Concomitant]
     Active Substance: METOPROLOL SUCCINATE
  10. METRONIDAZOLE. [Concomitant]
     Active Substance: METRONIDAZOLE
  11. AZELASTINE NASAL SPRAY [Concomitant]
  12. GABAPENTIN. [Concomitant]
     Active Substance: GABAPENTIN
  13. INSULIN ASPART [Concomitant]
     Active Substance: INSULIN ASPART
  14. POTASSIUM CHLORIDE. [Concomitant]
     Active Substance: POTASSIUM CHLORIDE
  15. DUONEB [Concomitant]
     Active Substance: ALBUTEROL SULFATE\IPRATROPIUM BROMIDE
  16. FLUOXETINE [Concomitant]
     Active Substance: FLUOXETINE HYDROCHLORIDE
  17. MONTELUKAST [Concomitant]
     Active Substance: MONTELUKAST SODIUM
  18. TIZANIDINE. [Concomitant]
     Active Substance: TIZANIDINE

REACTIONS (1)
  - Leukocytosis [None]

NARRATIVE: CASE EVENT DATE: 20180119
